FAERS Safety Report 7393790-X (Version None)
Quarter: 2011Q2

REPORT INFORMATION
  Report Type: 
  Country: None (occurrence: None)
  Receive Date: 20110405
  Receipt Date: 20110325
  Transmission Date: 20111010
  Serious: Yes (Death, Hospitalization, Other)
  Sender: FDA-Public Use
  Company Number: JP-ELI_LILLY_AND_COMPANY-US_011178209

PATIENT
  Sex: Male
  Weight: 90 kg

DRUGS (8)
  1. IMPROMEN [Concomitant]
     Dosage: UNK, UNKNOWN
  2. TIMIPERONE [Concomitant]
     Indication: SCHIZOPHRENIA
     Dosage: 6 MG, DAILY (1/D)
     Route: 048
     Dates: start: 19990301, end: 20011101
  3. BIPERIDEN HYDROCHLORIDE TAB [Concomitant]
     Indication: PARKINSONISM
     Dosage: 2 MG, DAILY (1/D)
     Route: 048
     Dates: start: 19990301, end: 20011101
  4. ZYPREXA [Suspect]
     Indication: SCHIZOPHRENIA
     Dosage: 15 MG, DAILY (1/D)
     Route: 048
     Dates: start: 20011010, end: 20011101
  5. SEPAZON [Concomitant]
     Indication: ANXIETY
     Dosage: 2 MG, DAILY (1/D)
     Route: 048
     Dates: start: 19990301, end: 20011101
  6. FENOFIBRATE [Concomitant]
     Indication: HYPERLIPIDAEMIA
     Dosage: 300 MG, DAILY (1/D)
     Route: 048
     Dates: start: 20010718, end: 20011101
  7. SEROQUEL [Concomitant]
     Indication: SCHIZOPHRENIA
     Dosage: UNK, UNKNOWN
     Dates: start: 20010620, end: 20011106
  8. SERENACE [Concomitant]
     Dosage: UNK, UNKNOWN

REACTIONS (6)
  - HYPERLIPIDAEMIA [None]
  - HYPERGLYCAEMIA [None]
  - INCREASED APPETITE [None]
  - LIVER INJURY [None]
  - DIABETIC HYPEROSMOLAR COMA [None]
  - CARDIO-RESPIRATORY ARREST [None]
